FAERS Safety Report 24677023 (Version 1)
Quarter: 2024Q4

REPORT INFORMATION
  Report Type: Spontaneous
  Country: US (occurrence: US)
  Receive Date: 20241128
  Receipt Date: 20241128
  Transmission Date: 20250115
  Serious: No
  Sender: ABBVIE
  Company Number: US-ABBVIE-6019726

PATIENT
  Age: 61 Year

DRUGS (1)
  1. HUMIRA [Suspect]
     Active Substance: ADALIMUMAB
     Indication: Polyarthritis
     Route: 058

REACTIONS (4)
  - Paraesthesia [Unknown]
  - Paraplegia [Unknown]
  - Off label use [Unknown]
  - Device issue [Unknown]
